FAERS Safety Report 11490016 (Version 6)
Quarter: 2016Q4

REPORT INFORMATION
  Report Type: Spontaneous
  Country: US (occurrence: US)
  Receive Date: 20150909
  Receipt Date: 20161216
  Transmission Date: 20170206
  Serious: Yes (Death, Life-Threatening, Hospitalization, Other)
  Sender: FDA-Public Use
  Company Number: US-ABBVIE-15P-163-1459623-00

PATIENT
  Age: 52 Year
  Sex: Female
  Weight: 118.8 kg

DRUGS (23)
  1. ALBUTEROL SULFATE AND IPRATROPIUM [Concomitant]
     Indication: PRODUCT USED FOR UNKNOWN INDICATION
  2. FLUTICASONE + SALMETEROL [Concomitant]
     Active Substance: FLUTICASONE FUROATE\SALMETEROL XINAFOATE
     Indication: PRODUCT USED FOR UNKNOWN INDICATION
  3. NYSTATIN. [Concomitant]
     Active Substance: NYSTATIN
     Indication: PRODUCT USED FOR UNKNOWN INDICATION
  4. POTASSIUM SODIUM PHOSPHATE [Concomitant]
     Indication: PRODUCT USED FOR UNKNOWN INDICATION
  5. GLUCAGON. [Concomitant]
     Active Substance: GLUCAGON
     Indication: PRODUCT USED FOR UNKNOWN INDICATION
  6. ASPIRIN. [Concomitant]
     Active Substance: ASPIRIN
     Indication: PRODUCT USED FOR UNKNOWN INDICATION
  7. SPIRONOLACTONE. [Concomitant]
     Active Substance: SPIRONOLACTONE
     Indication: PRODUCT USED FOR UNKNOWN INDICATION
  8. NIMBEX [Suspect]
     Active Substance: CISATRACURIUM BESYLATE
     Indication: PARALYSIS
     Dosage: UNKNOWN DOSE
     Route: 065
     Dates: start: 20150618
  9. REMODULIN [Suspect]
     Active Substance: TREPROSTINIL
     Dosage: 0.016 MCG/KG, CONTINUING
     Route: 058
     Dates: start: 20150313
  10. HEPARIN [Concomitant]
     Active Substance: HEPARIN SODIUM
     Indication: PRODUCT USED FOR UNKNOWN INDICATION
  11. MAGNESIUM OXIDE. [Concomitant]
     Active Substance: MAGNESIUM OXIDE
     Indication: PRODUCT USED FOR UNKNOWN INDICATION
  12. DIGOXIN. [Suspect]
     Active Substance: DIGOXIN
     Indication: PULMONARY ARTERIAL HYPERTENSION
     Dosage: UNKNOWN DOSE
     Route: 048
     Dates: start: 20150310, end: 20150328
  13. ACETAMINOPHEN. [Concomitant]
     Active Substance: ACETAMINOPHEN
     Indication: PRODUCT USED FOR UNKNOWN INDICATION
  14. REMODULIN [Suspect]
     Active Substance: TREPROSTINIL
     Indication: PULMONARY ARTERIAL HYPERTENSION
     Dosage: 16NG/KG/MIN
     Route: 058
     Dates: start: 20150218, end: 20150621
  15. REMODULIN [Suspect]
     Active Substance: TREPROSTINIL
     Dosage: 25 MCG/KG/MIN UNKNOWN FREQUENCY
     Route: 042
     Dates: end: 20150621
  16. DEXTROSE. [Concomitant]
     Active Substance: DEXTROSE
     Indication: PRODUCT USED FOR UNKNOWN INDICATION
  17. REMODULIN [Suspect]
     Active Substance: TREPROSTINIL
     Dosage: 0.030 MCG/KG, CONTINUING
     Route: 058
  18. REVATIO [Concomitant]
     Active Substance: SILDENAFIL CITRATE
     Indication: PRODUCT USED FOR UNKNOWN INDICATION
  19. NIMBEX [Suspect]
     Active Substance: CISATRACURIUM BESYLATE
     Indication: PULMONARY ARTERIAL HYPERTENSION
  20. REMODULIN [Suspect]
     Active Substance: TREPROSTINIL
     Dosage: 15 MG, CONTINUING
     Route: 058
  21. REMODULIN [Suspect]
     Active Substance: TREPROSTINIL
     Dosage: 0.036 MCG/KG, CONTINUING
     Route: 058
     Dates: start: 20150310
  22. ATORVASTATIN [Concomitant]
     Active Substance: ATORVASTATIN
     Indication: PRODUCT USED FOR UNKNOWN INDICATION
  23. LISPRO-INSULIN [Concomitant]
     Active Substance: INSULIN LISPRO
     Indication: PRODUCT USED FOR UNKNOWN INDICATION

REACTIONS (49)
  - Asthenia [Unknown]
  - Fluid overload [Unknown]
  - Pneumonia [Unknown]
  - Ventricular tachycardia [Unknown]
  - Tachycardia [Unknown]
  - Acute respiratory failure [Unknown]
  - Right atrial pressure increased [Unknown]
  - Dyspnoea [Unknown]
  - Cardioactive drug level increased [Recovered/Resolved]
  - Hypoxia [Unknown]
  - Breath sounds abnormal [Unknown]
  - Infection [Unknown]
  - Electrocardiogram abnormal [Unknown]
  - Acute respiratory distress syndrome [Unknown]
  - Hypercapnia [Unknown]
  - Blood bilirubin increased [Unknown]
  - Hepatic congestion [Unknown]
  - Pulmonary veno-occlusive disease [Unknown]
  - Hypotension [Unknown]
  - Oedema [Unknown]
  - Pneumonitis [Unknown]
  - Hypovolaemia [Recovered/Resolved]
  - Pulmonary congestion [Unknown]
  - Oliguria [Unknown]
  - Cardiac arrest [Fatal]
  - Acute kidney injury [Recovered/Resolved]
  - Chest discomfort [Fatal]
  - Pulmonary haemorrhage [Unknown]
  - Hyponatraemia [Unknown]
  - Ascites [Unknown]
  - Cardiogenic shock [Fatal]
  - Pulmonary hypertension [Unknown]
  - Hypovolaemia [Unknown]
  - Pollakiuria [Unknown]
  - Blood pressure increased [Unknown]
  - Respiratory failure [Unknown]
  - Pulmonary oedema [Unknown]
  - Thrombocytopenia [Unknown]
  - Heart rate increased [Unknown]
  - Disseminated intravascular coagulation [Unknown]
  - Hypervolaemia [Unknown]
  - Pneumonia aspiration [Unknown]
  - Hepatic enzyme increased [Unknown]
  - Blood alkaline phosphatase increased [Unknown]
  - Hyponatraemia [Fatal]
  - Sinus tachycardia [Fatal]
  - Pulmonary arterial hypertension [Unknown]
  - Toxicity to various agents [Recovered/Resolved]
  - Cardiomegaly [Unknown]

NARRATIVE: CASE EVENT DATE: 20150621
